FAERS Safety Report 7535264-9 (Version None)
Quarter: 2011Q2

REPORT INFORMATION
  Report Type: 
  Country: None (occurrence: None)
  Receive Date: 20110609
  Receipt Date: 20100212
  Transmission Date: 20111010
  Serious: No
  Sender: FDA-Public Use
  Company Number: 2010BI005147

PATIENT
  Sex: Male

DRUGS (1)
  1. TYSABRI [Suspect]
     Indication: MULTIPLE SCLEROSIS
     Route: 042
     Dates: start: 20080117, end: 20110331

REACTIONS (3)
  - LOSS OF CONTROL OF LEGS [None]
  - DRUG INEFFECTIVE [None]
  - MOBILITY DECREASED [None]
